FAERS Safety Report 7578906-4 (Version None)
Quarter: 2011Q2

REPORT INFORMATION
  Report Type: 
  Country: None (occurrence: None)
  Receive Date: 20110628
  Receipt Date: 20110624
  Transmission Date: 20111010
  Serious: Yes (Death)
  Sender: FDA-Public Use
  Company Number: US-ASTRAZENECA-2011SE38191

PATIENT
  Age: 90 Year
  Sex: Female

DRUGS (1)
  1. SEROQUEL [Suspect]
     Indication: DEMENTIA ALZHEIMER'S TYPE
     Route: 048
     Dates: start: 20110101

REACTIONS (1)
  - DEMENTIA ALZHEIMER'S TYPE [None]
